FAERS Safety Report 5940637-1 (Version None)
Quarter: 2008Q4

REPORT INFORMATION
  Report Type: 
  Country: None (occurrence: None)
  Receive Date: 20081030
  Receipt Date: 20081020
  Transmission Date: 20090506
  Serious: Yes (Death)
  Sender: FDA-Public Use
  Company Number: A-CH2008-21484

PATIENT
  Age: 14 Year
  Sex: Female
  Weight: 52.8 kg

DRUGS (3)
  1. TRACLEER [Suspect]
     Indication: PULMONARY ARTERIAL HYPERTENSION
     Dosage: 125 MG, ORAL; 62.5 MG, ORAL
     Route: 048
     Dates: start: 20070622, end: 20070722
  2. TRACLEER [Suspect]
     Indication: PULMONARY ARTERIAL HYPERTENSION
     Dosage: 125 MG, ORAL; 62.5 MG, ORAL
     Route: 048
     Dates: start: 20070723, end: 20080728
  3. ACENOCOUMAROL (ACENOCOUMAROL) [Concomitant]

REACTIONS (3)
  - GENERAL ANAESTHESIA [None]
  - ODONTOGENIC CYST [None]
  - SURGERY [None]
